FAERS Safety Report 8439855-2 (Version None)
Quarter: 2012Q2

REPORT INFORMATION
  Report Type: 
  Country: None (occurrence: None)
  Receive Date: 20120323
  Receipt Date: 20110610
  Transmission Date: 20120825
  Serious: Yes (Hospitalization)
  Sender: FDA-Public Use
  Company Number: 163-21880-11061564

PATIENT
  Age: 77 Year
  Sex: Male

DRUGS (2)
  1. REVLIMID [Suspect]
     Indication: MULTIPLE MYELOMA
     Dosage: 25 MG, DAILY FOR 21 DAYS, PO, 15 MG, DAILY FOR 21 DAYS, PO
     Route: 048
     Dates: start: 20100506, end: 20110527
  2. REVLIMID [Suspect]
     Indication: MULTIPLE MYELOMA
     Dosage: 25 MG, DAILY FOR 21 DAYS, PO, 15 MG, DAILY FOR 21 DAYS, PO
     Route: 048
     Dates: start: 20110601

REACTIONS (1)
  - LOSS OF CONSCIOUSNESS [None]
